FAERS Safety Report 23608689 (Version 1)
Quarter: 2024Q1

REPORT INFORMATION
  Report Type: Spontaneous
  Country: CN (occurrence: CN)
  Receive Date: 20240308
  Receipt Date: 20240308
  Transmission Date: 20240410
  Serious: Yes (Other)
  Sender: FDA-Public Use
  Company Number: CN-PFIZER INC-PV202400029806

PATIENT
  Age: 69 Year
  Sex: Male
  Weight: 78 kg

DRUGS (1)
  1. FLUCONAZOLE [Suspect]
     Active Substance: FLUCONAZOLE
     Indication: Anti-infective therapy
     Dosage: 100 MG, 1X/DAY
     Route: 048
     Dates: start: 20240214, end: 20240220

REACTIONS (2)
  - Drug eruption [Unknown]
  - Macule [Unknown]

NARRATIVE: CASE EVENT DATE: 20240219
